FAERS Safety Report 9641757 (Version 1)
Quarter: 2013Q4

REPORT INFORMATION
  Report Type: Spontaneous
  Country: US (occurrence: US)
  Receive Date: 20131023
  Receipt Date: 20131023
  Transmission Date: 20140711
  Serious: Yes (Hospitalization)
  Sender: FDA-Public Use
  Company Number: US-BAYER-2013-127976

PATIENT
  Age: 22 Year
  Sex: Female
  Weight: 58.96 kg

DRUGS (18)
  1. YAZ [Suspect]
  2. YASMIN [Suspect]
  3. ZYRTEC-D [Concomitant]
  4. MIDRIN [Concomitant]
  5. SKELAXIN [Concomitant]
     Dosage: 800 MG, UNK
  6. HYDROCODONE W/APAP [Concomitant]
     Dosage: 5-325 MG
  7. CELEBREX [Concomitant]
     Dosage: 200 MG, UNK
  8. VITAMIN C [Concomitant]
  9. ESTER C [Concomitant]
  10. SUPER B COMPLEX [Concomitant]
  11. FLUCONAZOLE [Concomitant]
     Dosage: 150 MG, UNK
  12. CIPROFLOXACIN [Concomitant]
     Dosage: 500 MG, UNK
  13. EPHEDRIN [Concomitant]
  14. CEPHALEXIN [Concomitant]
  15. AXERT [Concomitant]
     Dosage: 12.5 MG, UNK
  16. AZITHROMYCIN [Concomitant]
     Dosage: 250 MG, UNK
  17. LEVAQUIN [Concomitant]
     Dosage: 500 MG, UNK
  18. SULFAMETHOPRIM [Concomitant]

REACTIONS (2)
  - Deep vein thrombosis [Recovered/Resolved]
  - Pulmonary embolism [Recovered/Resolved]
